FAERS Safety Report 5996963-3 (Version None)
Quarter: 2008Q4

REPORT INFORMATION
  Report Type: 
  Country: None (occurrence: None)
  Receive Date: 20081212
  Receipt Date: 20080615
  Transmission Date: 20090506
  Serious: No
  Sender: FDA-Public Use
  Company Number: US-AMGEN-KDL284532

PATIENT
  Sex: Female
  Weight: 52.4 kg

DRUGS (4)
  1. ENBREL [Suspect]
     Indication: PSORIATIC ARTHROPATHY
     Route: 058
     Dates: start: 20080515
  2. METHOTREXATE [Suspect]
     Route: 048
     Dates: start: 20080515
  3. RELAFEN [Concomitant]
     Dates: start: 20080505
  4. FOLIC ACID [Concomitant]
     Dates: start: 20080515

REACTIONS (5)
  - DENTAL CARIES [None]
  - FATIGUE [None]
  - PAIN [None]
  - RESPIRATORY TRACT INFECTION [None]
  - SINUSITIS [None]
